FAERS Safety Report 14904042 (Version 6)
Quarter: 2019Q3

REPORT INFORMATION
  Report Type: Spontaneous
  Country: US (occurrence: US)
  Receive Date: 20180516
  Receipt Date: 20190807
  Transmission Date: 20191004
  Serious: No
  Sender: FDA-Public Use
  Company Number: US-ACTELION-A-NJ2018-171530

PATIENT
  Age: 30 Year
  Sex: Female
  Weight: 58.96 kg

DRUGS (6)
  1. VELETRI [Suspect]
     Active Substance: EPOPROSTENOL
     Indication: PULMONARY ARTERIAL HYPERTENSION
     Dosage: 28.5 NG/KG, PER MIN
     Route: 042
  2. VELETRI [Suspect]
     Active Substance: EPOPROSTENOL
     Dosage: 32 NG/KG, PER MIN
     Route: 042
  3. ADCIRCA [Concomitant]
     Active Substance: TADALAFIL
  4. VELETRI [Suspect]
     Active Substance: EPOPROSTENOL
     Dosage: 29 NG/KG, PER MIN
     Route: 042
  5. LETAIRIS [Concomitant]
     Active Substance: AMBRISENTAN
  6. ELIQUIS [Concomitant]
     Active Substance: APIXABAN

REACTIONS (14)
  - Rash [Unknown]
  - Catheter site related reaction [Unknown]
  - Ear infection [Unknown]
  - Vascular device infection [Unknown]
  - Eye swelling [Unknown]
  - Catheter site erythema [Unknown]
  - Catheter site granuloma [Unknown]
  - Diarrhoea [Unknown]
  - Swelling face [Unknown]
  - Catheter site irritation [Unknown]
  - Catheter management [Unknown]
  - Device use error [Unknown]
  - Bronchitis [Unknown]
  - Catheter site infection [Unknown]

NARRATIVE: CASE EVENT DATE: 201804
